FAERS Safety Report 4285240-7 (Version None)
Quarter: 2004Q1

REPORT INFORMATION
  Report Type: 
  Country: None (occurrence: None)
  Receive Date: 20040202
  Receipt Date: 20040121
  Transmission Date: 20041129
  Serious: Yes (Other)
  Sender: FDA-Public Use
  Company Number: SE-JNJFOC-20031001581

PATIENT
  Age: 59 Year
  Sex: Female

DRUGS (8)
  1. REMICADE [Suspect]
     Indication: RHEUMATOID ARTHRITIS
     Dosage: 4 DOSES
     Dates: start: 20021105, end: 20030501
  2. PAROXETINE HCL [Concomitant]
  3. SALAZOPYRIN (SULFASALAZINE) TABLETS [Concomitant]
  4. ALVEDON (PARACETAMOL) TABLETS [Concomitant]
  5. DOLOXENE (DEXTROPROPOXYPHENE HYDROCHLORIDE) CAPSULES [Concomitant]
  6. DIDRONATE (ETIDRONATE DISODIUM) [Concomitant]
  7. PREDNISOLONE [Concomitant]
  8. MOBIC [Concomitant]

REACTIONS (5)
  - ACID FAST BACILLI INFECTION [None]
  - ASTHENIA [None]
  - BRONCHITIS [None]
  - CONDITION AGGRAVATED [None]
  - TUBERCULOSIS [None]
